FAERS Safety Report 8815760 (Version 1)
Quarter: 2012Q4

REPORT INFORMATION
  Report Type: 
  Country: FR (occurrence: FR)
  Receive Date: 20120928
  Receipt Date: 20120928
  Transmission Date: 20130627
  Serious: Yes (Hospitalization)
  Sender: FDA-Public Use
  Company Number: FR-B.I. PHARMACEUTICALS,INC./RIDGEFIELD-2012-FF-01315FF

PATIENT
  Age: 49 Year
  Sex: Male

DRUGS (1)
  1. PRADAXA [Suspect]
     Indication: PULMONARY EMBOLISM
     Dosage: 220 mg
     Route: 048
     Dates: end: 201206

REACTIONS (1)
  - Hepatitis acute [Recovered/Resolved]
